FAERS Safety Report 12557675 (Version 1)
Quarter: 2016Q3

REPORT INFORMATION
  Report Type: Spontaneous
  Country: US (occurrence: US)
  Receive Date: 20160714
  Receipt Date: 20160714
  Transmission Date: 20161109
  Serious: Yes (Death, Other)
  Sender: FDA-Public Use
  Company Number: US-TAKEDA-TPA2013A05548

PATIENT

DRUGS (7)
  1. METFORMIN [Concomitant]
     Active Substance: METFORMIN HYDROCHLORIDE
     Dosage: 500 MG, BID
     Dates: start: 20030126, end: 20130515
  2. ACTOS [Suspect]
     Active Substance: PIOGLITAZONE HYDROCHLORIDE
     Indication: TYPE 2 DIABETES MELLITUS
     Dosage: 45 MG, UNK
     Route: 048
     Dates: start: 20060318, end: 20110915
  3. LEVEMIR [Concomitant]
     Active Substance: INSULIN DETEMIR
     Dosage: 20 IU, QD
     Dates: start: 20120220, end: 20130405
  4. DIABETA [Concomitant]
     Active Substance: GLYBURIDE
     Dosage: 5 MG, UNK
     Dates: start: 19980110, end: 20011030
  5. DIABETA [Concomitant]
     Active Substance: GLYBURIDE
     Dosage: 5 MG, UNK
     Dates: start: 20030126, end: 20130515
  6. AVANDIA [Concomitant]
     Active Substance: ROSIGLITAZONE MALEATE
     Dosage: 4 MG, BID
     Dates: start: 20011120, end: 20071031
  7. GLUCOPHAGE [Concomitant]
     Active Substance: METFORMIN HYDROCHLORIDE
     Dosage: 500 MG, QID
     Dates: start: 19980110, end: 20011030

REACTIONS (2)
  - Bladder cancer [Not Recovered/Not Resolved]
  - Death [Fatal]

NARRATIVE: CASE EVENT DATE: 20130318
